FAERS Safety Report 8563873-7 (Version None)
Quarter: 2012Q3

REPORT INFORMATION
  Report Type: 
  Country: None (occurrence: None)
  Receive Date: 20120727
  Receipt Date: 20120727
  Transmission Date: 20120928
  Serious: Yes (Life-Threatening, Hospitalization, Disabling, Other)
  Sender: FDA-Public Use
  Company Number: None

PATIENT
  Sex: Female
  Weight: 7.5 kg

DRUGS (2)
  1. MICELLIZED D3M 1000 IU/DROP, NUMEDICA [Suspect]
     Indication: VITAMIN D
     Dates: start: 20111215, end: 20120416
  2. MICELLIZED D3M 1000 IU/DROP, NUMEDICA [Suspect]
     Indication: VITAMIN SUPPLEMENTATION
     Dates: start: 20111215, end: 20120416

REACTIONS (7)
  - CRYING [None]
  - WEIGHT DECREASED [None]
  - FEEDING DISORDER OF INFANCY OR EARLY CHILDHOOD [None]
  - FAILURE TO THRIVE [None]
  - INCORRECT DOSE ADMINISTERED [None]
  - RENAL DISORDER [None]
  - IRRITABILITY [None]
